FAERS Safety Report 10763565 (Version 2)
Quarter: 2015Q2

REPORT INFORMATION
  Report Type: Spontaneous
  Country: FR (occurrence: FR)
  Receive Date: 20150204
  Receipt Date: 20150402
  Transmission Date: 20150821
  Serious: Yes (Hospitalization)
  Sender: FDA-Public Use
  Company Number: FR-PFIZER INC-2015038173

PATIENT
  Age: 74 Year
  Sex: Male

DRUGS (14)
  1. LASILIX [Concomitant]
     Active Substance: FUROSEMIDE
  2. OFLOCET [Concomitant]
     Active Substance: OFLOXACIN
     Indication: POST PROCEDURAL INFECTION
     Dosage: 200 MG, 3X/DAY
     Dates: start: 20141115
  3. AVODART [Concomitant]
     Active Substance: DUTASTERIDE
  4. TAZOCILLINE [Suspect]
     Active Substance: PIPERACILLIN SODIUM\TAZOBACTAM SODIUM
     Indication: POST PROCEDURAL INFECTION
     Dosage: 4 G, 3X/DAY
     Dates: start: 20141115, end: 20150120
  5. INORIAL [Concomitant]
     Active Substance: BILASTINE
     Dosage: UNK
     Dates: start: 201412
  6. ALLOPURINOL. [Concomitant]
     Active Substance: ALLOPURINOL
  7. PRAVASTATIN [Concomitant]
     Active Substance: PRAVASTATIN\PRAVASTATIN SODIUM
  8. ALFUZOSIN HYDROCHLORIDE. [Concomitant]
     Active Substance: ALFUZOSIN HYDROCHLORIDE
  9. XYZALL [Concomitant]
     Active Substance: LEVOCETIRIZINE DIHYDROCHLORIDE
     Dosage: UNK
     Dates: start: 20141223
  10. CORDARONE [Concomitant]
     Active Substance: AMIODARONE HYDROCHLORIDE
  11. TRANSIPEG [Concomitant]
     Active Substance: POLYETHYLENE GLYCOL 3350
  12. EXFORGE [Concomitant]
     Active Substance: AMLODIPINE BESYLATE\VALSARTAN
  13. PLAVIX [Concomitant]
     Active Substance: CLOPIDOGREL BISULFATE
  14. DELURSAN [Concomitant]
     Active Substance: URSODIOL

REACTIONS (1)
  - Toxic skin eruption [Recovered/Resolved]

NARRATIVE: CASE EVENT DATE: 20141219
